FAERS Safety Report 4955054-0 (Version None)
Quarter: 2006Q1

REPORT INFORMATION
  Report Type: 
  Country: None (occurrence: None)
  Receive Date: 20060322
  Receipt Date: 20060305
  Transmission Date: 20060701
  Serious: Yes (Hospitalization)
  Sender: FDA-Public Use
  Company Number: US200603001542

PATIENT
  Age: 30 Year
  Sex: Female

DRUGS (1)
  1. PROZAC [Suspect]
     Dosage: ORAL
     Route: 048
     Dates: start: 20060101

REACTIONS (4)
  - ANXIETY [None]
  - DRUG EXPOSURE VIA BREAST MILK [None]
  - EMOTIONAL DISTRESS [None]
  - HYPERTENSION [None]
